FAERS Safety Report 22900963 (Version 2)
Quarter: 2023Q4

REPORT INFORMATION
  Report Type: Spontaneous
  Country: US (occurrence: US)
  Receive Date: 20230904
  Receipt Date: 20231003
  Transmission Date: 20240109
  Serious: No
  Sender: FDA-Public Use
  Company Number: US-AMGEN-USASP2023155056

PATIENT
  Sex: Female

DRUGS (4)
  1. XGEVA [Suspect]
     Active Substance: DENOSUMAB
     Indication: Product used for unknown indication
     Dosage: UNK
     Route: 065
     Dates: start: 20230824
  2. XELODA [Concomitant]
     Active Substance: CAPECITABINE
     Dosage: 1 DOSAGE FORM, BID
  3. TUKYSA [Concomitant]
     Active Substance: TUCATINIB
     Indication: Breast cancer female
  4. COLACE [Concomitant]
     Active Substance: DOCUSATE SODIUM

REACTIONS (6)
  - Myalgia [Unknown]
  - Chest discomfort [Unknown]
  - Blood potassium decreased [Unknown]
  - Constipation [Unknown]
  - Night sweats [Unknown]
  - Blood iron decreased [Unknown]
